FAERS Safety Report 16648529 (Version 2)
Quarter: 2019Q3

REPORT INFORMATION
  Report Type: Spontaneous
  Country: PT (occurrence: PT)
  Receive Date: 20190730
  Receipt Date: 20190806
  Transmission Date: 20191004
  Serious: Yes (Hospitalization, Other)
  Sender: FDA-Public Use
  Company Number: PT-ALLERGAN-1930834US

PATIENT
  Sex: Female
  Weight: 72 kg

DRUGS (6)
  1. PYLERA [Suspect]
     Active Substance: BISMUTH SUBCITRATE POTASSIUM\METRONIDAZOLE\TETRACYCLINE HYDROCHLORIDE
     Indication: HELICOBACTER GASTRITIS
     Dosage: 3+3+3+3 AFTER MEALS
     Route: 048
     Dates: start: 20190710, end: 20190716
  2. SYMBICORT [Concomitant]
     Active Substance: BUDESONIDE\FORMOTEROL FUMARATE DIHYDRATE
     Route: 055
  3. VASTAREL LM [Concomitant]
     Route: 048
  4. CO-DIOVAN FORTE [Concomitant]
     Active Substance: HYDROCHLOROTHIAZIDE\VALSARTAN
     Route: 048
  5. ULCERMIN [Concomitant]
     Active Substance: SUCRALFATE
     Route: 048
  6. CRESTOR [Concomitant]
     Active Substance: ROSUVASTATIN CALCIUM
     Route: 048

REACTIONS (7)
  - Dizziness [Recovering/Resolving]
  - Headache [Recovering/Resolving]
  - Balance disorder [Recovering/Resolving]
  - Tachycardia [Recovering/Resolving]
  - Photophobia [Recovering/Resolving]
  - Asthenia [Recovering/Resolving]
  - Blindness transient [Recovering/Resolving]

NARRATIVE: CASE EVENT DATE: 20190711
